FAERS Safety Report 24340628 (Version 3)
Quarter: 2025Q1

REPORT INFORMATION
  Report Type: Spontaneous
  Country: FI (occurrence: FI)
  Receive Date: 20240919
  Receipt Date: 20250211
  Transmission Date: 20250408
  Serious: Yes (Hospitalization, Other)
  Sender: SANOFI AVENTIS
  Company Number: FI-SA-2024SA267446

PATIENT
  Age: 42 Year
  Sex: Male

DRUGS (4)
  1. DUPILUMAB [Suspect]
     Active Substance: DUPILUMAB
     Indication: Chronic rhinosinusitis with nasal polyps
     Dosage: 300 MG QOW
     Route: 058
     Dates: start: 20220202, end: 20230524
  2. DUPILUMAB [Suspect]
     Active Substance: DUPILUMAB
     Dosage: 300 MG, QOW
     Route: 058
     Dates: start: 20231117
  3. FLUTICASONE FUROATE\VILANTEROL TRIFENATATE [Concomitant]
     Active Substance: FLUTICASONE FUROATE\VILANTEROL TRIFENATATE
  4. FLUTICASONE PROPIONATE [Concomitant]
     Active Substance: FLUTICASONE PROPIONATE

REACTIONS (12)
  - Confusional state [Recovered/Resolved]
  - Muscle twitching [Recovered/Resolved]
  - Petit mal epilepsy [Recovered/Resolved]
  - Transient ischaemic attack [Recovered/Resolved]
  - Amnesia [Recovered/Resolved]
  - Urticaria [Recovered/Resolved]
  - Nasal polyps [Recovered/Resolved]
  - Nasal congestion [Recovered/Resolved]
  - Anosmia [Recovering/Resolving]
  - Condition aggravated [Recovering/Resolving]
  - Gastrointestinal disorder [Recovered/Resolved]
  - Vomiting [Recovered/Resolved]

NARRATIVE: CASE EVENT DATE: 20230101
